FAERS Safety Report 17765210 (Version 1)
Quarter: 2020Q2

REPORT INFORMATION
  Report Type: Report from Study
  Country: IE (occurrence: IE)
  Receive Date: 20200511
  Receipt Date: 20200511
  Transmission Date: 20200714
  Serious: Yes (Other)
  Sender: FDA-Public Use
  Company Number: IE-JNJFOC-20200507890

PATIENT
  Age: 58 Year
  Sex: Female

DRUGS (6)
  1. ZOTON [Concomitant]
     Active Substance: LANSOPRAZOLE
     Route: 050
  2. MIRABEGRON [Concomitant]
     Active Substance: MIRABEGRON
     Route: 050
  3. LISINOPRIL. [Concomitant]
     Active Substance: LISINOPRIL
     Route: 050
  4. STELARA [Suspect]
     Active Substance: USTEKINUMAB
     Indication: PSORIATIC ARTHROPATHY
     Route: 058
     Dates: start: 20190124
  5. XALATAN [Concomitant]
     Active Substance: LATANOPROST
     Dosage: 50 MCG
     Route: 050
  6. LEVOCETIRIZINE DIHYDROCHLORIDE. [Concomitant]
     Active Substance: LEVOCETIRIZINE DIHYDROCHLORIDE
     Route: 050

REACTIONS (1)
  - Lower respiratory tract infection [Recovered/Resolved]

NARRATIVE: CASE EVENT DATE: 20200310
